FAERS Safety Report 5152845-0 (Version None)
Quarter: 2006Q4

REPORT INFORMATION
  Report Type: 
  Country: None (occurrence: None)
  Receive Date: 20060918
  Receipt Date: 20060424
  Transmission Date: 20070319
  Serious: Yes (Other)
  Sender: FDA-Public Use
  Company Number: PHEH2005US13957

PATIENT
  Age: 13 Year
  Sex: Male
  Weight: 28 kg

DRUGS (6)
  1. FEMARA [Suspect]
     Indication: EPIPHYSES DELAYED FUSION
     Dosage: 2.5 MG, QD, ORAL
     Route: 048
     Dates: start: 20051205
  2. HUMAN GROWTH HORMONE, RECOMBINANT (SOMATROPIN) [Concomitant]
  3. RITALIN [Concomitant]
  4. CONCERTA [Concomitant]
  5. LEXAPRO [Concomitant]
  6. CLARITIN [Concomitant]

REACTIONS (1)
  - DEPRESSION [None]
